FAERS Safety Report 12978797 (Version 1)
Quarter: 2016Q4

REPORT INFORMATION
  Report Type: Spontaneous
  Country: US (occurrence: US)
  Receive Date: 20161128
  Receipt Date: 20161128
  Transmission Date: 20170207
  Serious: Yes (Hospitalization, Other)
  Sender: FDA-Public Use
  Company Number: US-PFIZER INC-2016540544

PATIENT
  Age: 71 Year
  Sex: Male
  Weight: 72.57 kg

DRUGS (13)
  1. DRONABINOL. [Concomitant]
     Active Substance: DRONABINOL
     Indication: PAIN
     Dosage: 5 MG, 3X/DAY
  2. DIAZIDE /00007602/ [Concomitant]
     Active Substance: HYDRALAZINE HYDROCHLORIDE
     Indication: HYPERTENSION
     Dosage: 20 MG, UNK
  3. FLEET ENEMA [Suspect]
     Active Substance: SODIUM PHOSPHATE, DIBASIC\SODIUM PHOSPHATE, MONOBASIC
     Indication: CONSTIPATION
     Dosage: 1 DF (1 BOTTLE), ONCE
     Route: 054
     Dates: start: 201610, end: 201610
  4. PRAVASTATIN. [Concomitant]
     Active Substance: PRAVASTATIN
     Indication: BLOOD CHOLESTEROL INCREASED
     Dosage: 20 MG, UNK
  5. BOTOX [Concomitant]
     Active Substance: ONABOTULINUMTOXINA
     Indication: NEUROGENIC BLADDER
     Dosage: 200 INJECTION, EVERY SIX MONTHS
     Dates: end: 2016
  6. ASPIRIN. [Concomitant]
     Active Substance: ASPIRIN
     Indication: CEREBROVASCULAR ACCIDENT PROPHYLAXIS
     Dosage: 0.81 MG, UNK
  7. PAXIL [Concomitant]
     Active Substance: PAROXETINE HYDROCHLORIDE
     Indication: DEPRESSION
     Dosage: 20 MG, DAILY (TWO EACH MORNING)
  8. DULCOLAX (BISACODYL) [Suspect]
     Active Substance: BISACODYL
     Indication: CONSTIPATION
     Dosage: 1 DF, 1X/DAY, (1 TABLET)
     Route: 048
     Dates: start: 201610, end: 201610
  9. NEURONTIN [Concomitant]
     Active Substance: GABAPENTIN
     Indication: PAIN
     Dosage: 2400 MG (800MG THREE A DAY)
     Dates: start: 2007
  10. DITROPAN [Concomitant]
     Active Substance: OXYBUTYNIN CHLORIDE
     Indication: NEUROGENIC BLADDER
     Dosage: 15 MG, DAILY, (15MG EXTENDED RELEASE PER DAY)
  11. SUTENT [Suspect]
     Active Substance: SUNITINIB MALATE
     Indication: PARAGANGLION NEOPLASM
     Dosage: 25 MG, 1X/DAY
     Route: 048
     Dates: start: 2016, end: 20161021
  12. METOPROLOL. [Concomitant]
     Active Substance: METOPROLOL
     Indication: HYPERTENSION
     Dosage: 50 MG, DAILY (A DAY)
  13. CYMBALTA [Concomitant]
     Active Substance: DULOXETINE HYDROCHLORIDE
     Indication: PAIN
     Dosage: 60 MG, DAILY (A DAY)

REACTIONS (13)
  - Constipation [Recovered/Resolved]
  - Blood pressure increased [Not Recovered/Not Resolved]
  - Respiratory arrest [Recovered/Resolved]
  - Decreased appetite [Recovered/Resolved]
  - Presyncope [Recovered/Resolved]
  - Diarrhoea [Recovered/Resolved]
  - Weight decreased [Recovered/Resolved]
  - Malaise [Unknown]
  - Hypotension [Recovered/Resolved]
  - Dyspepsia [Recovered/Resolved]
  - Product use issue [Recovered/Resolved]
  - Stomatitis [Recovered/Resolved]
  - Dysgeusia [Recovered/Resolved]

NARRATIVE: CASE EVENT DATE: 2016
